FAERS Safety Report 6714510-5 (Version None)
Quarter: 2010Q2

REPORT INFORMATION
  Report Type: 
  Country: None (occurrence: None)
  Receive Date: 20100506
  Receipt Date: 20100428
  Transmission Date: 20101027
  Serious: Yes (Other)
  Sender: FDA-Public Use
  Company Number: US-GILEAD-2010-0028082

PATIENT
  Sex: Female
  Weight: 93.07 kg

DRUGS (15)
  1. LETAIRIS [Suspect]
     Indication: PULMONARY ARTERIAL HYPERTENSION
     Route: 048
     Dates: start: 20081212
  2. VENTAVIS [Concomitant]
  3. REVATIO [Concomitant]
  4. COUMADIN [Concomitant]
  5. OXYGEN [Concomitant]
  6. LASIX [Concomitant]
  7. METOPROLOL [Concomitant]
  8. CATAPRES [Concomitant]
  9. PROZAC [Concomitant]
  10. PAXIL [Concomitant]
  11. XANAX [Concomitant]
  12. ATIVAN [Concomitant]
  13. VICODIN [Concomitant]
  14. PERCOCET [Concomitant]
  15. K-DUR [Concomitant]

REACTIONS (1)
  - SYNCOPE [None]
